FAERS Safety Report 4891296-0 (Version None)
Quarter: 2006Q1

REPORT INFORMATION
  Report Type: 
  Country: None (occurrence: None)
  Receive Date: 20060123
  Receipt Date: 20060102
  Transmission Date: 20060701
  Serious: Yes (Other)
  Sender: FDA-Public Use
  Company Number: 2006S1000003

PATIENT
  Age: 1 Day
  Sex: Female

DRUGS (12)
  1. INOMAX [Suspect]
     Indication: LUNG DISORDER
     Dosage: 5 PPM; INH_GAS; INH; CONT
     Route: 055
     Dates: start: 20051222
  2. INOMAX [Suspect]
     Indication: PROPHYLAXIS
     Dosage: 5 PPM; INH_GAS; INH; CONT
     Route: 055
     Dates: start: 20051222
  3. CEFOTAXIME SODIUM [Concomitant]
  4. AMPICILLIN [Concomitant]
  5. TOBRAMYCIN [Concomitant]
  6. NYSTATIN [Concomitant]
  7. HYDROCORTISONE [Concomitant]
  8. TOBRAMYCIN [Concomitant]
  9. CAFFEINE (CAFFEINE) [Concomitant]
  10. DOBUTAMINE (DOBUTAMINE) [Concomitant]
  11. INDOMETHACIN [Concomitant]
  12. IBUPROFEN [Concomitant]

REACTIONS (2)
  - PATENT DUCTUS ARTERIOSUS [None]
  - PREMATURE BABY [None]
